FAERS Safety Report 23719796 (Version 1)
Quarter: 2024Q2

REPORT INFORMATION
  Report Type: Spontaneous
  Country: US (occurrence: None)
  Receive Date: 20240408
  Receipt Date: 20240408
  Transmission Date: 20240715
  Serious: No
  Sender: FDA-Public Use
  Company Number: None

PATIENT
  Age: 65 Year
  Sex: Female
  Weight: 90.5 kg

DRUGS (4)
  1. YESCARTA [Suspect]
     Active Substance: AXICABTAGENE CILOLEUCEL
     Indication: Diffuse large B-cell lymphoma
     Dosage: FREQUENCY : ONCE;?
     Route: 041
     Dates: start: 20240306, end: 20240306
  2. Tocilizimab [Concomitant]
     Dates: start: 20240307, end: 20240307
  3. DEXAMETHASONE [Concomitant]
     Active Substance: DEXAMETHASONE
     Dates: start: 20240308, end: 20240326
  4. ANAKINRA [Concomitant]
     Active Substance: ANAKINRA
     Dates: start: 20240310, end: 20240326

REACTIONS (14)
  - Supraventricular tachycardia [None]
  - Acute respiratory failure [None]
  - Immune effector cell-associated neurotoxicity syndrome [None]
  - Cytokine release syndrome [None]
  - Hypernatraemia [None]
  - Hyperglycaemia [None]
  - Acute kidney injury [None]
  - Cardiomyopathy [None]
  - Aspiration [None]
  - Septic shock [None]
  - Reflexes abnormal [None]
  - Areflexia [None]
  - Hyperkalaemia [None]
  - Metabolic acidosis [None]

NARRATIVE: CASE EVENT DATE: 20240326
